FAERS Safety Report 5393633-X (Version None)
Quarter: 2007Q3

REPORT INFORMATION
  Report Type: 
  Country: None (occurrence: None)
  Receive Date: 20070723
  Receipt Date: 20061006
  Transmission Date: 20080115
  Serious: No
  Sender: FDA-Public Use
  Company Number: A0622948A

PATIENT
  Age: 63 Year
  Sex: Female
  Weight: 79.1 kg

DRUGS (17)
  1. AVANDIA [Suspect]
     Indication: DRUG USE FOR UNKNOWN INDICATION
     Route: 048
     Dates: start: 20060501, end: 20060501
  2. BYETTA [Suspect]
     Dosage: 5MCG TWICE PER DAY
     Route: 058
  3. TOPROL-XL [Concomitant]
  4. ALTACE [Concomitant]
  5. ASPIRIN [Concomitant]
  6. ALLOPURINOL [Concomitant]
  7. CRESTOR [Concomitant]
  8. TRICOR [Concomitant]
  9. ESTRACE [Concomitant]
  10. FOLIC ACID [Concomitant]
  11. XIFAXAN [Concomitant]
  12. ASACOL [Concomitant]
  13. METFORMIN HCL [Concomitant]
  14. STARLIX [Concomitant]
  15. PREVACID [Concomitant]
  16. FAMOTIDINE [Concomitant]
  17. PLAVIX [Concomitant]

REACTIONS (5)
  - GASTROENTERITIS VIRAL [None]
  - NAUSEA [None]
  - VOMITING [None]
  - WEIGHT DECREASED [None]
  - WEIGHT INCREASED [None]
